FAERS Safety Report 9725478 (Version 3)
Quarter: 2014Q1

REPORT INFORMATION
  Report Type: Spontaneous
  Country: US (occurrence: US)
  Receive Date: 20131203
  Receipt Date: 20140106
  Transmission Date: 20141002
  Serious: Yes (Other)
  Sender: FDA-Public Use
  Company Number: US-DENDREON CORPORATION-2013PROUSA03327

PATIENT
  Age: 71 Year
  Sex: Male
  Weight: 90.7 kg

DRUGS (2)
  1. PROVENGE [Suspect]
     Indication: PROSTATE CANCER METASTATIC
     Dosage: 250 ML, SINGLE
     Route: 042
     Dates: start: 20131111, end: 20131111
  2. LUPRON [Concomitant]
     Indication: PROSTATE CANCER

REACTIONS (4)
  - Myasthenia gravis [Unknown]
  - Eyelid ptosis [Unknown]
  - Blood pressure increased [Recovered/Resolved]
  - Prostatic specific antigen increased [Not Recovered/Not Resolved]
